FAERS Safety Report 21730674 (Version 2)
Quarter: 2022Q4

REPORT INFORMATION
  Report Type: Spontaneous
  Country: US (occurrence: US)
  Receive Date: 20221215
  Receipt Date: 20221215
  Transmission Date: 20230113
  Serious: No
  Sender: FDA-Public Use
  Company Number: US-BRISTOL-MYERS SQUIBB COMPANY-2022-153721

PATIENT
  Age: 80 Year
  Sex: Female
  Weight: 90 kg

DRUGS (8)
  1. REVLIMID [Suspect]
     Active Substance: LENALIDOMIDE
     Indication: Plasma cell myeloma
     Dosage: FREQ: 3 WEEKS ON 7 DAYS OFF
     Route: 048
     Dates: start: 20220714
  2. REVLIMID [Suspect]
     Active Substance: LENALIDOMIDE
     Dosage: FREQUENCY: ONCE DAILY X 21 DAYS ON, 7 DAYS OFF
     Route: 048
     Dates: start: 2022, end: 20221208
  3. ASPIRIN [Concomitant]
     Active Substance: ASPIRIN
     Indication: Product used for unknown indication
  4. OMEPRAZOLE [Concomitant]
     Active Substance: OMEPRAZOLE
     Indication: Product used for unknown indication
  5. ROSUVASTATIN [Concomitant]
     Active Substance: ROSUVASTATIN
     Indication: Product used for unknown indication
  6. METOPROLOL SUCCINATE [Concomitant]
     Active Substance: METOPROLOL SUCCINATE
     Indication: Product used for unknown indication
  7. ELIQUIS [Concomitant]
     Active Substance: APIXABAN
     Indication: Product used for unknown indication
  8. FUROSEMIDE [Concomitant]
     Active Substance: FUROSEMIDE
     Indication: Product used for unknown indication

REACTIONS (9)
  - Lethargy [Unknown]
  - Dizziness [Unknown]
  - Asthenia [Unknown]
  - Quality of life decreased [Unknown]
  - Fatigue [Unknown]
  - Sleep disorder [Unknown]
  - Muscle spasms [Unknown]
  - Tremor [Unknown]
  - Tremor [Unknown]

NARRATIVE: CASE EVENT DATE: 20221001
